FAERS Safety Report 8037764-4 (Version None)
Quarter: 2012Q1

REPORT INFORMATION
  Report Type: 
  Country: None (occurrence: None)
  Receive Date: 20120111
  Receipt Date: 20120103
  Transmission Date: 20120608
  Serious: Yes (Death, Hospitalization)
  Sender: FDA-Public Use
  Company Number: US-BAXTER-2011BH040146

PATIENT
  Age: 51 Year
  Sex: Male
  Weight: 117 kg

DRUGS (6)
  1. EXTRANEAL [Suspect]
     Indication: PERITONEAL DIALYSIS
     Route: 033
     Dates: start: 20090513, end: 20110909
  2. DIANEAL [Suspect]
     Route: 033
     Dates: start: 20090513, end: 20110909
  3. DIANEAL [Suspect]
     Indication: PERITONEAL DIALYSIS
     Route: 033
     Dates: start: 20090513, end: 20110909
  4. DIANEAL [Suspect]
     Route: 033
     Dates: start: 20090513, end: 20110909
  5. EXTRANEAL [Suspect]
     Route: 033
     Dates: start: 20090513, end: 20110909
  6. EXTRANEAL [Suspect]
     Route: 033
     Dates: start: 20090513, end: 20110909

REACTIONS (3)
  - VASCULITIS [None]
  - CARDIOMYOPATHY [None]
  - PAIN [None]
